FAERS Safety Report 5877866-1 (Version None)
Quarter: 2008Q3

REPORT INFORMATION
  Report Type: 
  Country: None (occurrence: None)
  Receive Date: 20080911
  Receipt Date: 20080905
  Transmission Date: 20090109
  Serious: Yes (Other)
  Sender: FDA-Public Use
  Company Number: TR-ABBOTT-08P-161-0434063-00

PATIENT
  Age: 32 Year
  Sex: Female

DRUGS (2)
  1. KLACID MR TABLETS [Suspect]
     Indication: BRONCHITIS
     Route: 048
     Dates: start: 20080111, end: 20080111
  2. PSEUDOEPHEDRINE HYDROCHLORIDE [Concomitant]
     Indication: BRONCHITIS
     Route: 048

REACTIONS (2)
  - ABORTION INDUCED [None]
  - DRUG EXPOSURE DURING PREGNANCY [None]
